FAERS Safety Report 4978637-0 (Version None)
Quarter: 2006Q2

REPORT INFORMATION
  Report Type: 
  Country: None (occurrence: None)
  Receive Date: 20060420
  Receipt Date: 20051004
  Transmission Date: 20061013
  Serious: Yes (Hospitalization)
  Sender: FDA-Public Use
  Company Number: US-MERCK-0510USA03519

PATIENT
  Age: 64 Year
  Sex: Female
  Weight: 139 kg

DRUGS (5)
  1. VIOXX [Suspect]
     Indication: PAIN IN EXTREMITY
     Route: 048
     Dates: start: 20010901, end: 20011001
  2. VIOXX [Suspect]
     Indication: PHLEBITIS
     Route: 048
     Dates: start: 20010901, end: 20011001
  3. METHOTREXATE [Concomitant]
     Route: 065
     Dates: end: 20010101
  4. DICLOFENAC [Concomitant]
     Route: 065
  5. ACETAMINOPHEN AND PROPOXYPHENE HYDROCHLORIDE [Concomitant]
     Route: 065

REACTIONS (35)
  - ARTERIOSCLEROSIS [None]
  - BLOOD PRESSURE DIASTOLIC INCREASED [None]
  - BRONCHITIS [None]
  - CARBUNCLE [None]
  - CEREBROVASCULAR ACCIDENT [None]
  - CHRONIC OBSTRUCTIVE PULMONARY DISEASE [None]
  - DEEP VEIN THROMBOSIS [None]
  - DEPRESSION [None]
  - DIABETES MELLITUS NON-INSULIN-DEPENDENT [None]
  - DYSPEPSIA [None]
  - DYSPNOEA [None]
  - FATIGUE [None]
  - GASTROINTESTINAL DISORDER [None]
  - GLUCOSE TOLERANCE IMPAIRED [None]
  - HYPOXIA [None]
  - INTERVERTEBRAL DISC DEGENERATION [None]
  - LOW DENSITY LIPOPROTEIN INCREASED [None]
  - LUNG NEOPLASM [None]
  - MAJOR DEPRESSION [None]
  - NEUROLOGICAL EXAMINATION ABNORMAL [None]
  - PAIN IN EXTREMITY [None]
  - PEPTIC ULCER [None]
  - PULMONARY EMBOLISM [None]
  - PULMONARY HYPERTENSION [None]
  - PULSE ABNORMAL [None]
  - RESPIRATORY TRACT INFECTION [None]
  - RESTLESS LEGS SYNDROME [None]
  - RETINOPATHY [None]
  - SEBORRHOEIC KERATOSIS [None]
  - SPINAL COLUMN STENOSIS [None]
  - THROMBOPHLEBITIS [None]
  - THROMBOPHLEBITIS SUPERFICIAL [None]
  - URINARY TRACT INFECTION [None]
  - VASCULITIS [None]
  - WEIGHT INCREASED [None]
